FAERS Safety Report 24776479 (Version 2)
Quarter: 2025Q1

REPORT INFORMATION
  Report Type: Report from Study
  Country: US (occurrence: US)
  Receive Date: 20241226
  Receipt Date: 20250302
  Transmission Date: 20250409
  Serious: Yes (Other)
  Sender: JAZZ
  Company Number: US-JAZZ PHARMACEUTICALS-2023-US-015171

PATIENT
  Sex: Male

DRUGS (19)
  1. XYWAV [Suspect]
     Active Substance: CALCIUM OXYBATE\MAGNESIUM OXYBATE\POTASSIUM OXYBATE\SODIUM OXYBATE
     Indication: Narcolepsy
     Dosage: 3.5 GRAM, BID
     Route: 048
  2. XYWAV [Suspect]
     Active Substance: CALCIUM OXYBATE\MAGNESIUM OXYBATE\POTASSIUM OXYBATE\SODIUM OXYBATE
     Indication: Cataplexy
  3. XYWAV [Suspect]
     Active Substance: CALCIUM OXYBATE\MAGNESIUM OXYBATE\POTASSIUM OXYBATE\SODIUM OXYBATE
     Indication: Somnolence
  4. ASPIRIN [Concomitant]
     Active Substance: ASPIRIN
  5. LIPITOR [Concomitant]
     Active Substance: ATORVASTATIN CALCIUM
  6. ASTELIN [Concomitant]
     Active Substance: AZELASTINE HYDROCHLORIDE
  7. BRILINTA [Concomitant]
     Active Substance: TICAGRELOR
  8. COREG [Concomitant]
     Active Substance: CARVEDILOL
  9. VITAMIN D3 [Concomitant]
     Active Substance: CHOLECALCIFEROL
  10. PLAVIX [Concomitant]
     Active Substance: CLOPIDOGREL BISULFATE
  11. FISH OIL [Concomitant]
     Active Substance: FISH OIL
  12. ENALAPRILAT [Concomitant]
     Active Substance: ENALAPRILAT
  13. FOLVITE [Concomitant]
     Active Substance: FOLIC ACID
  14. IMDUR [Concomitant]
     Active Substance: ISOSORBIDE MONONITRATE
  15. TOPROL XL [Concomitant]
     Active Substance: METOPROLOL SUCCINATE
  16. THERAGRAN [VITAMINS NOS] [Concomitant]
  17. NITROSTAT [Concomitant]
     Active Substance: NITROGLYCERIN
  18. XIFAXAN [Concomitant]
     Active Substance: RIFAXIMIN
  19. PROVIGIL [Concomitant]
     Active Substance: MODAFINIL

REACTIONS (10)
  - Colitis ulcerative [Unknown]
  - Abdominal discomfort [Unknown]
  - Cough [Unknown]
  - Drug intolerance [Unknown]
  - Malaise [Unknown]
  - Multiple allergies [Unknown]
  - Drug effect less than expected [Unknown]
  - Product administration interrupted [Unknown]
  - Product dose omission issue [Unknown]
  - Wrong dose [Unknown]
